FAERS Safety Report 4647614-1 (Version None)
Quarter: 2005Q2

REPORT INFORMATION
  Report Type: 
  Country: None (occurrence: None)
  Receive Date: 20050426
  Receipt Date: 20050414
  Transmission Date: 20051028
  Serious: Yes (Other)
  Sender: FDA-Public Use
  Company Number: US-2005-005679

PATIENT
  Sex: Female

DRUGS (2)
  1. MIRENA [Suspect]
     Indication: CONTRACEPTION
     Dosage: SEE IMAGE
     Route: 015
     Dates: start: 20050405, end: 20050419
  2. MIRENA [Suspect]
     Indication: CONTRACEPTION
     Dosage: SEE IMAGE
     Route: 015
     Dates: start: 20050419

REACTIONS (2)
  - DEVICE FAILURE [None]
  - VAGINAL HAEMORRHAGE [None]
